FAERS Safety Report 4312147-9 (Version None)
Quarter: 2004Q1

REPORT INFORMATION
  Report Type: 
  Country: None (occurrence: None)
  Receive Date: 20040303
  Receipt Date: 20040227
  Transmission Date: 20041129
  Serious: Yes (Other)
  Sender: FDA-Public Use
  Company Number: NUBN20040004

PATIENT
  Age: 59 Year
  Sex: Female

DRUGS (5)
  1. NUBAIN [Suspect]
     Indication: POST PROCEDURAL PAIN
     Dosage: ONCE  IV
     Route: 042
     Dates: start: 20040130, end: 20040130
  2. DURAGESIC [Suspect]
     Indication: PAIN
     Dosage: 1 PER  48 HRS. TOP
     Route: 061
     Dates: start: 20010101
  3. PREDNISONE [Concomitant]
  4. METHOTREXATE [Concomitant]
  5. MIACALCIN [Concomitant]

REACTIONS (2)
  - APPENDICITIS PERFORATED [None]
  - CONVULSION [None]
